FAERS Safety Report 25107790 (Version 1)
Quarter: 2025Q1

REPORT INFORMATION
  Report Type: Spontaneous
  Country: US (occurrence: US)
  Receive Date: 20250322
  Receipt Date: 20250322
  Transmission Date: 20250409
  Serious: No
  Sender: SANOFI AVENTIS
  Company Number: US-SA-2025SA079973

PATIENT
  Sex: Female

DRUGS (15)
  1. DUPIXENT [Suspect]
     Active Substance: DUPILUMAB
     Indication: Asthma
     Dosage: 300 MG, QOW
     Route: 058
  2. TRELEGY ELLIPTA [Concomitant]
     Active Substance: FLUTICASONE FUROATE\UMECLIDINIUM BROMIDE\VILANTEROL TRIFENATATE
  3. ABILIFY [Concomitant]
     Active Substance: ARIPIPRAZOLE
  4. ALPRAZOLAM [Concomitant]
     Active Substance: ALPRAZOLAM
  5. ATORVASTATIN [Concomitant]
     Active Substance: ATORVASTATIN
  6. BIOTIN [Concomitant]
     Active Substance: BIOTIN
  7. CALCIUM [Concomitant]
     Active Substance: CALCIUM
  8. CYCLOBENZAPRINE [Concomitant]
     Active Substance: CYCLOBENZAPRINE
  9. FUROSEMIDE [Concomitant]
     Active Substance: FUROSEMIDE
  10. LEVOTHYROXINE [Concomitant]
     Active Substance: LEVOTHYROXINE
  11. MONTELUKAST [Concomitant]
     Active Substance: MONTELUKAST
  12. OZEMPIC [Concomitant]
     Active Substance: SEMAGLUTIDE
  13. PREDNISONE [Concomitant]
     Active Substance: PREDNISONE
  14. SERTRALINE HYDROCHLORIDE [Concomitant]
     Active Substance: SERTRALINE HYDROCHLORIDE
  15. URSODIOL [Concomitant]
     Active Substance: URSODIOL

REACTIONS (4)
  - Depressed mood [Not Recovered/Not Resolved]
  - Decreased interest [Not Recovered/Not Resolved]
  - Asthma [Not Recovered/Not Resolved]
  - Dyspnoea [Not Recovered/Not Resolved]
